FAERS Safety Report 15387193 (Version 5)
Quarter: 2020Q4

REPORT INFORMATION
  Report Type: Report from Study
  Country: US (occurrence: US)
  Receive Date: 20180914
  Receipt Date: 20201126
  Transmission Date: 20210113
  Serious: Yes (Other)
  Sender: FDA-Public Use
  Company Number: US-AMGEN-USACT2018126800

PATIENT
  Age: 19 Year
  Sex: Female
  Weight: 74.4 kg

DRUGS (9)
  1. NAPROXEN SODIUM. [Concomitant]
     Active Substance: NAPROXEN SODIUM
     Dosage: 220 MILLIGRAM
     Route: 048
     Dates: start: 20170501, end: 20200328
  2. OXYCODONE [Concomitant]
     Active Substance: OXYCODONE
     Dosage: 5 MILLIGRAM
     Route: 048
     Dates: start: 20180101, end: 20200328
  3. TALIMOGENE LAHERPAREPVEC [Suspect]
     Active Substance: TALIMOGENE LAHERPAREPVEC
     Dosage: 4 MILLILITER
     Route: 026
     Dates: start: 20180928
  4. GABAPENTIN. [Concomitant]
     Active Substance: GABAPENTIN
     Dosage: 300 MILLIGRAM
     Route: 048
     Dates: start: 20180706, end: 20200328
  5. ACETAMINOPHEN. [Concomitant]
     Active Substance: ACETAMINOPHEN
     Dosage: 325 MILLIGRAM
     Route: 048
     Dates: start: 20170501, end: 20200328
  6. TRAMADOL. [Concomitant]
     Active Substance: TRAMADOL
     Dosage: 50 MILLIGRAM
     Route: 048
     Dates: start: 20180908, end: 20200328
  7. TALIMOGENE LAHERPAREPVEC [Suspect]
     Active Substance: TALIMOGENE LAHERPAREPVEC
     Indication: NEOPLASM MALIGNANT
     Dosage: 4 MILLILITER
     Route: 026
     Dates: start: 20180208
  8. IBUPROFEN. [Concomitant]
     Active Substance: IBUPROFEN
     Dosage: 200 MILLIGRAM
     Route: 048
     Dates: start: 20170501, end: 20190410
  9. ALBUTEROL HFA [Concomitant]
     Active Substance: ALBUTEROL SULFATE
     Dosage: 90 MICROGRAM
     Route: 050
     Dates: start: 20180717, end: 20200328

REACTIONS (1)
  - Pulmonary embolism [Recovered/Resolved]

NARRATIVE: CASE EVENT DATE: 20180910
